FAERS Safety Report 10033104 (Version 2)
Quarter: 2014Q1

REPORT INFORMATION
  Report Type: Report from Study
  Country: US (occurrence: US)
  Receive Date: 20140324
  Receipt Date: 20140324
  Transmission Date: 20141002
  Serious: Yes (Hospitalization)
  Sender: FDA-Public Use
  Company Number: US-ACTELION-A-NJ2014-94659

PATIENT
  Age: 75 Year
  Sex: Female

DRUGS (2)
  1. MACITENTAN [Suspect]
     Indication: PULMONARY ARTERIAL HYPERTENSION
     Dosage: 10 MG, UNK
     Route: 048
     Dates: start: 20140110
  2. ADCIRCA [Concomitant]
     Dosage: 40 MG, QD
     Dates: start: 20130520

REACTIONS (4)
  - Respiratory tract congestion [Recovering/Resolving]
  - Dyspnoea [Recovering/Resolving]
  - Fatigue [Not Recovered/Not Resolved]
  - Malaise [Not Recovered/Not Resolved]
